FAERS Safety Report 11327486 (Version 3)
Quarter: 2015Q3

REPORT INFORMATION
  Report Type: Spontaneous
  Country: FI (occurrence: FI)
  Receive Date: 20150731
  Receipt Date: 20150930
  Transmission Date: 20151125
  Serious: No
  Sender: FDA-Public Use
  Company Number: FI-GLAXOSMITHKLINE-FI2015GSK108942

PATIENT
  Age: 67 Year
  Sex: Female

DRUGS (1)
  1. FLIXOTIDE EVOHALER [Suspect]
     Active Substance: FLUTICASONE PROPIONATE
     Indication: PNEUMONIA
     Dosage: 500 ?G, UNK
     Dates: start: 20150720, end: 20150721

REACTIONS (2)
  - Suffocation feeling [Recovered/Resolved]
  - Respiratory symptom [Recovered/Resolved]

NARRATIVE: CASE EVENT DATE: 20150720
